FAERS Safety Report 25160534 (Version 1)
Quarter: 2025Q2

REPORT INFORMATION
  Report Type: Spontaneous
  Country: US (occurrence: None)
  Receive Date: 20250403
  Receipt Date: 20250403
  Transmission Date: 20250716
  Serious: Yes (Other)
  Sender: FDA-CTU
  Company Number: None

PATIENT
  Age: 22 Year
  Sex: Female
  Weight: 83.25 kg

DRUGS (1)
  1. CYMBALTA [Suspect]
     Active Substance: DULOXETINE HYDROCHLORIDE
     Indication: Depression
     Dosage: DAILLY ORAL ?
     Route: 048
     Dates: start: 20240701, end: 20250101

REACTIONS (1)
  - Cycloplegia [None]

NARRATIVE: CASE EVENT DATE: 20240701
